FAERS Safety Report 5995867-X (Version None)
Quarter: 2008Q4

REPORT INFORMATION
  Report Type: 
  Country: None (occurrence: None)
  Receive Date: 20081212
  Receipt Date: 20081205
  Transmission Date: 20090506
  Serious: Yes (Death, Hospitalization)
  Sender: FDA-Public Use
  Company Number: US-ROXANE LABORATORIES, INC.-2008-RO-00369RO

PATIENT
  Age: 4 Year
  Sex: Female

DRUGS (5)
  1. MEFLOQUINE [Suspect]
     Indication: MALARIA PROPHYLAXIS
     Dates: start: 20060101
  2. ANTIBIOTICS [Concomitant]
     Indication: INFECTION
  3. CORTICOSTEROIDS [Concomitant]
     Indication: ANTIINFLAMMATORY THERAPY
  4. CORTICOSTEROIDS [Concomitant]
     Indication: ALVEOLITIS
  5. IMMUNE GLOBULIN NOS [Concomitant]
     Indication: ALVEOLITIS

REACTIONS (6)
  - FATIGUE [None]
  - INTERSTITIAL LUNG DISEASE [None]
  - PULMONARY FIBROSIS [None]
  - PYREXIA [None]
  - RASH [None]
  - WEIGHT DECREASED [None]
